FAERS Safety Report 7492427-9 (Version None)
Quarter: 2011Q2

REPORT INFORMATION
  Report Type: 
  Country: None (occurrence: None)
  Receive Date: 20110519
  Receipt Date: 20110504
  Transmission Date: 20111010
  Serious: No
  Sender: FDA-Public Use
  Company Number: US-B.I. PHARMACEUTICALS,INC./RIDGEFIELD-2011-BP-05295BP

PATIENT
  Sex: Female

DRUGS (13)
  1. RESTORIL [Concomitant]
     Dosage: 15 MG
  2. LISINOPRIL [Concomitant]
     Indication: HYPERTENSION
     Dosage: 60 MG
     Route: 048
  3. ISOSORBIDE DINITRATE [Concomitant]
     Dosage: 60 MG
     Route: 048
  4. LEVOXYL [Concomitant]
     Dosage: 75 MCG
  5. DIGOXIN [Concomitant]
     Dosage: 0.125 MG
  6. CARVEDILOL [Concomitant]
     Dosage: 25 MG
  7. SENNA-MINT WAF [Concomitant]
  8. LORAZEPAM [Concomitant]
     Indication: SEDATIVE THERAPY
  9. POTASSIUM CL [Concomitant]
     Dosage: 20 MEQ
  10. PRADAXA [Suspect]
     Indication: ATRIAL FIBRILLATION
     Dosage: 300 MG
     Route: 048
     Dates: start: 20110101
  11. LOVAZA [Concomitant]
  12. OMEPRAZOLE [Concomitant]
     Dosage: 80 MG
  13. FUROSEMIDE [Concomitant]
     Dosage: 20 MG

REACTIONS (2)
  - ERYTHEMA [None]
  - PRURITUS [None]
